FAERS Safety Report 14169127 (Version 4)
Quarter: 2017Q4

REPORT INFORMATION
  Report Type: Report from Study
  Country: US (occurrence: US)
  Receive Date: 20171107
  Receipt Date: 20171221
  Transmission Date: 20180321
  Serious: Yes (Hospitalization)
  Sender: FDA-Public Use
  Company Number: US-ACTELION-A-NJ2017-161876

PATIENT
  Age: 69 Year
  Sex: Male
  Weight: 99.77 kg

DRUGS (5)
  1. UPTRAVI [Suspect]
     Active Substance: SELEXIPAG
     Indication: PULMONARY HYPERTENSION
     Dosage: 1400 MCG, BID
     Route: 048
  2. UPTRAVI [Suspect]
     Active Substance: SELEXIPAG
     Dosage: 1600 MCG, BID
     Route: 048
  3. SILDENAFIL. [Concomitant]
     Active Substance: SILDENAFIL
  4. OPSUMIT [Suspect]
     Active Substance: MACITENTAN
     Indication: PULMONARY HYPERTENSION
     Dosage: 10 MG, QD
     Route: 048
     Dates: start: 20170117, end: 20171101
  5. REMODULIN [Concomitant]
     Active Substance: TREPROSTINIL

REACTIONS (19)
  - Respiratory failure [Unknown]
  - Abdominal distension [Unknown]
  - Cardiac failure acute [Unknown]
  - Pulmonary arterial hypertension [Unknown]
  - Rash [Unknown]
  - Fluid overload [Unknown]
  - Drug ineffective [Unknown]
  - Disease progression [Unknown]
  - Peripheral swelling [Unknown]
  - Pain in extremity [Unknown]
  - Brain natriuretic peptide increased [Unknown]
  - Blood urea increased [Unknown]
  - Muscle spasms [Unknown]
  - Abdominal pain upper [Unknown]
  - Oedema peripheral [Unknown]
  - Foreign body [Unknown]
  - Blood creatinine increased [Unknown]
  - Dyspnoea [Unknown]
  - Troponin I increased [Unknown]

NARRATIVE: CASE EVENT DATE: 20170930
